FAERS Safety Report 14752490 (Version 1)
Quarter: 2018Q2

REPORT INFORMATION
  Report Type: Spontaneous
  Country: US (occurrence: US)
  Receive Date: 20180406
  Receipt Date: 20180406
  Transmission Date: 20180711
  Serious: No
  Sender: FDA-Public Use
  Company Number: None

PATIENT
  Age: 66 Year
  Sex: Female
  Weight: 65.09 kg

DRUGS (1)
  1. PREGABALIN. [Suspect]
     Active Substance: PREGABALIN
     Indication: HYPERTENSION
     Route: 048
     Dates: start: 20170621, end: 20180301

REACTIONS (1)
  - Sedation [None]

NARRATIVE: CASE EVENT DATE: 20180227
